FAERS Safety Report 5374565-X (Version None)
Quarter: 2007Q2

REPORT INFORMATION
  Report Type: 
  Country: None (occurrence: None)
  Receive Date: 20070629
  Receipt Date: 20070625
  Transmission Date: 20071010
  Serious: Yes (Hospitalization)
  Sender: FDA-Public Use
  Company Number: GB-BRISTOL-MYERS SQUIBB COMPANY-13825294

PATIENT
  Age: 63 Year
  Sex: Male

DRUGS (2)
  1. BENDROFLUMETHIAZIDE [Suspect]
     Indication: HYPERTENSION
  2. FLECAINIDE ACETATE [Interacting]
     Indication: TACHYCARDIA
     Route: 048

REACTIONS (5)
  - DRUG INTERACTION [None]
  - ELECTROCARDIOGRAM QRS COMPLEX PROLONGED [None]
  - HYPOKALAEMIA [None]
  - HYPONATRAEMIA [None]
  - SYNCOPE [None]
